FAERS Safety Report 4553242-9 (Version None)
Quarter: 2005Q1

REPORT INFORMATION
  Report Type: 
  Country: None (occurrence: None)
  Receive Date: 20050112
  Receipt Date: 20050112
  Transmission Date: 20050727
  Serious: Yes (Hospitalization)
  Sender: FDA-Public Use
  Company Number: None

PATIENT
  Sex: Male
  Weight: 77.5651 kg

DRUGS (10)
  1. TAXOTERE [Suspect]
     Indication: PROSTATE CANCER
     Dosage: 90MG, Q14DAY IV
     Route: 042
     Dates: start: 20041104
  2. PREDNISONE [Suspect]
     Indication: PROSTATE CANCER
     Dosage: 10MG QD PO
     Route: 048
     Dates: start: 20041104
  3. LEVOTHROID [Concomitant]
  4. COUMADIN [Concomitant]
  5. ... [Concomitant]
  6. AMBIEN [Concomitant]
  7. PROTONIX [Concomitant]
  8. LISINOPRIL [Concomitant]
  9. METOPROLOL [Concomitant]
  10. TOPROL-XL [Concomitant]

REACTIONS (7)
  - ABDOMINAL PAIN [None]
  - CARDIOMYOPATHY [None]
  - DEHYDRATION [None]
  - DIARRHOEA [None]
  - FATIGUE [None]
  - HYPOTENSION [None]
  - RECTAL HAEMORRHAGE [None]
